FAERS Safety Report 12337406 (Version 1)
Quarter: 2016Q2

REPORT INFORMATION
  Report Type: Spontaneous
  Country: FI (occurrence: FI)
  Receive Date: 20160505
  Receipt Date: 20160505
  Transmission Date: 20160815
  Serious: Yes (Other)
  Sender: FDA-Public Use
  Company Number: FI-ELI_LILLY_AND_COMPANY-FI201604009979

PATIENT
  Sex: Female

DRUGS (7)
  1. ZYPREXA [Suspect]
     Active Substance: OLANZAPINE
     Indication: PSYCHOMOTOR HYPERACTIVITY
  2. ZYPREXA [Suspect]
     Active Substance: OLANZAPINE
     Indication: SEROTONIN SYNDROME
  3. ZYPREXA [Suspect]
     Active Substance: OLANZAPINE
     Indication: EMOTIONAL DISORDER
  4. CYMBALTA [Suspect]
     Active Substance: DULOXETINE HYDROCHLORIDE
     Indication: PRODUCT USED FOR UNKNOWN INDICATION
     Dosage: UNK, UNKNOWN
     Route: 065
  5. ZYPREXA [Suspect]
     Active Substance: OLANZAPINE
     Indication: PSYCHOTIC DISORDER
     Dosage: UNK, UNKNOWN
     Route: 065
     Dates: end: 2011
  6. ZYPREXA [Suspect]
     Active Substance: OLANZAPINE
     Indication: ADVERSE EVENT
  7. ZYPREXA [Suspect]
     Active Substance: OLANZAPINE
     Indication: ANXIETY

REACTIONS (10)
  - Psychotic disorder [Unknown]
  - Dental caries [Unknown]
  - Blood glucose abnormal [Unknown]
  - Psychomotor hyperactivity [Unknown]
  - Weight increased [Unknown]
  - Blood pressure abnormal [Unknown]
  - Depression [Unknown]
  - Flat affect [Unknown]
  - Serotonin syndrome [Unknown]
  - Insomnia [Recovered/Resolved]
